FAERS Safety Report 9302171 (Version 2)
Quarter: 2013Q3

REPORT INFORMATION
  Report Type: Spontaneous
  Country: BR (occurrence: BR)
  Receive Date: 20130522
  Receipt Date: 20130716
  Transmission Date: 20140515
  Serious: Yes (Other)
  Sender: FDA-Public Use
  Company Number: BR-009507513-1301BRA009585

PATIENT
  Age: 55 Year
  Sex: Female
  Weight: 65 kg

DRUGS (9)
  1. VICTRELIS [Suspect]
     Indication: HEPATITIS C
     Dosage: 400 MG, QAM
     Route: 048
     Dates: start: 20121015
  2. VICTRELIS [Suspect]
     Indication: HEPATITIS B
     Dosage: 200 MG, QPM
     Route: 048
     Dates: start: 20121015
  3. RIBAVIRIN [Suspect]
     Dosage: UNK
     Route: 048
  4. INTERFERON (UNSPECIFIED) [Concomitant]
     Dosage: UNK
  5. RIBAVIRIN [Concomitant]
     Dosage: UNK
  6. AMLODIPINE [Concomitant]
     Indication: HYPERTENSION
     Dosage: UNK
  7. HYDROCHLOROTHIAZIDE [Concomitant]
     Indication: HYPERTENSION
     Dosage: UNK
  8. ATENOLOL [Concomitant]
     Indication: HYPERTENSION
     Dosage: UNK
  9. SIMVASTATIN [Concomitant]
     Dosage: UNK
     Dates: start: 2003

REACTIONS (9)
  - Deafness [Not Recovered/Not Resolved]
  - Dissociation [Not Recovered/Not Resolved]
  - Epistaxis [Recovered/Resolved]
  - Weight decreased [Not Recovered/Not Resolved]
  - Anaemia [Not Recovered/Not Resolved]
  - Diarrhoea [Not Recovered/Not Resolved]
  - Decreased appetite [Unknown]
  - Off label use [Unknown]
  - Drug administration error [Unknown]
